FAERS Safety Report 7564600-2 (Version None)
Quarter: 2011Q2

REPORT INFORMATION
  Report Type: 
  Country: None (occurrence: None)
  Receive Date: 20110622
  Receipt Date: 20101026
  Transmission Date: 20111010
  Serious: Yes (Other)
  Sender: FDA-Public Use
  Company Number: US-MYLANLABS-2010S1011299

PATIENT
  Age: 51 Year
  Sex: Male

DRUGS (12)
  1. DIGOXIN [Concomitant]
     Route: 048
  2. LOVAZA [Concomitant]
     Route: 048
  3. CLOZAPINE [Suspect]
     Dates: start: 20101001
  4. ATENOLOL [Concomitant]
     Route: 048
  5. CAPTOPRIL [Concomitant]
     Route: 048
  6. LEXAPRO [Concomitant]
     Route: 048
  7. RISPERIDONE [Concomitant]
     Route: 048
  8. CLOZAPINE [Suspect]
     Dates: end: 20100729
  9. FUROSEMIDE [Concomitant]
     Route: 048
  10. WARFARIN SODIUM [Concomitant]
     Route: 048
  11. LORATADINE [Concomitant]
     Route: 048
  12. CLOZAPINE [Suspect]
     Dates: start: 20100730, end: 20101001

REACTIONS (2)
  - GRANULOCYTOPENIA [None]
  - LEUKOPENIA [None]
